FAERS Safety Report 5631889-6 (Version None)
Quarter: 2008Q1

REPORT INFORMATION
  Report Type: 
  Country: None (occurrence: None)
  Receive Date: 20080220
  Receipt Date: 20080211
  Transmission Date: 20080703
  Serious: Yes (Hospitalization)
  Sender: FDA-Public Use
  Company Number: DE-BRACCO-000047

PATIENT
  Age: 56 Year
  Sex: Female

DRUGS (4)
  1. MULTIHANCE [Suspect]
     Indication: NUCLEAR MAGNETIC RESONANCE IMAGING
     Route: 065
     Dates: start: 20080201, end: 20080201
  2. FENISTIL [Concomitant]
     Route: 065
     Dates: start: 20080201
  3. TAGAMET                            /00397401/ [Concomitant]
     Route: 065
     Dates: start: 20080201
  4. SOLU-DECORTIN-H [Concomitant]
     Dosage: RECEIVED ONE DOSIS AFTER OCCURRENCE OF EVENTS AND A SECOND ONE ADMINISTERED BY EMERGENCY PHYSICIAN
     Route: 065
     Dates: start: 20080201

REACTIONS (5)
  - DEPRESSED LEVEL OF CONSCIOUSNESS [None]
  - MUSCLE SPASMS [None]
  - NAUSEA [None]
  - URINARY INCONTINENCE [None]
  - VOMITING [None]
